FAERS Safety Report 9404491 (Version 1)
Quarter: 2013Q3

REPORT INFORMATION
  Report Type: Spontaneous
  Country: US (occurrence: US)
  Receive Date: 20130717
  Receipt Date: 20130717
  Transmission Date: 20140515
  Serious: No
  Sender: FDA-Public Use
  Company Number: US-PFIZER INC-2013204686

PATIENT
  Age: 47 Year
  Sex: Female
  Weight: 50.34 kg

DRUGS (3)
  1. ALSUMA [Suspect]
     Indication: MIGRAINE
     Dosage: 6 MG, UNK
     Dates: start: 20130706
  2. NAPROXEN [Concomitant]
     Dosage: UNK
  3. IMITREX [Concomitant]
     Dosage: UNK

REACTIONS (2)
  - Injection site erythema [Unknown]
  - Injection site reaction [Unknown]
